FAERS Safety Report 8290027-4 (Version None)
Quarter: 2012Q2

REPORT INFORMATION
  Report Type: 
  Country: None (occurrence: None)
  Receive Date: 20120417
  Receipt Date: 20120413
  Transmission Date: 20120825
  Serious: No
  Sender: FDA-Public Use
  Company Number: US-TEVA-333441USA

PATIENT
  Sex: Male
  Weight: 87.168 kg

DRUGS (2)
  1. FLUTICASONE PROPIONATE/SALMETEROL [Concomitant]
     Indication: ASTHMA
     Dosage: BID
  2. PROAIR HFA [Suspect]
     Indication: ASTHMA
     Dosage: PRN

REACTIONS (1)
  - BREATH ALCOHOL TEST POSITIVE [None]
